FAERS Safety Report 22156906 (Version 1)
Quarter: 2023Q1

REPORT INFORMATION
  Report Type: Spontaneous
  Country: ES (occurrence: ES)
  Receive Date: 20230330
  Receipt Date: 20230330
  Transmission Date: 20230418
  Serious: Yes (Other)
  Sender: FDA-Public Use
  Company Number: None

PATIENT
  Age: 46 Year
  Sex: Female

DRUGS (2)
  1. LORAZEPAM [Suspect]
     Active Substance: LORAZEPAM
     Dosage: 10 TABLETS OF 1MG (10 MG )
     Route: 048
     Dates: start: 20230316, end: 20230316
  2. DULOXETINE [Suspect]
     Active Substance: DULOXETINE
     Dosage: 10 TABLETS OF 60 MG (600 MG)
     Route: 048
     Dates: start: 20230316, end: 20230316

REACTIONS (3)
  - Intentional overdose [Unknown]
  - Suicide attempt [Unknown]
  - Somnolence [Recovered/Resolved]

NARRATIVE: CASE EVENT DATE: 20230316
